FAERS Safety Report 7535771-9 (Version None)
Quarter: 2011Q2

REPORT INFORMATION
  Report Type: 
  Country: None (occurrence: None)
  Receive Date: 20110609
  Receipt Date: 20110311
  Transmission Date: 20111010
  Serious: No
  Sender: FDA-Public Use
  Company Number: US-KINGPHARMUSA00001-K201100262

PATIENT

DRUGS (1)
  1. EMBEDA [Suspect]
     Dosage: UNK

REACTIONS (1)
  - PRURITUS [None]
